FAERS Safety Report 9785799 (Version 1)
Quarter: 2013Q4

REPORT INFORMATION
  Report Type: Spontaneous
  Country: GB (occurrence: GB)
  Receive Date: 20131227
  Receipt Date: 20131227
  Transmission Date: 20140711
  Serious: Yes (Hospitalization)
  Sender: FDA-Public Use
  Company Number: GB-ASTRAZENECA-2013SE92274

PATIENT
  Age: 19 Year
  Sex: Male
  Weight: 78 kg

DRUGS (6)
  1. LIDOCAINE [Suspect]
     Indication: NEURALGIA
     Route: 061
     Dates: start: 20131203, end: 20131204
  2. AMITRIPTYLINE [Concomitant]
  3. CODEINE [Concomitant]
  4. PARACETAMOL [Concomitant]
  5. PREGABALIN [Concomitant]
  6. TRAMADOL [Concomitant]

REACTIONS (1)
  - Burning sensation [Not Recovered/Not Resolved]
